FAERS Safety Report 4974422-4 (Version None)
Quarter: 2006Q2

REPORT INFORMATION
  Report Type: 
  Country: None (occurrence: None)
  Receive Date: 20060410
  Receipt Date: 20060404
  Transmission Date: 20061013
  Serious: Yes (Death)
  Sender: FDA-Public Use
  Company Number: GBWYE401016FEB06

PATIENT
  Age: 43 Year
  Sex: Female

DRUGS (6)
  1. EFFEXOR [Suspect]
     Indication: DEPRESSION
     Dosage: SEE IMAGE
     Route: 048
     Dates: start: 20020626, end: 20050719
  2. EFFEXOR [Suspect]
     Indication: DEPRESSION
     Dosage: SEE IMAGE
     Route: 048
     Dates: start: 20050720
  3. DIAZEPAM [Concomitant]
  4. CO-CODAMOL (CODEINE PHOSPHATE/PARACETAMOL) [Concomitant]
  5. RISPERIDONE [Concomitant]
  6. ZOLPIDEM TARTRATE [Concomitant]

REACTIONS (3)
  - CHOKING [None]
  - MYOCARDIAL INFARCTION [None]
  - VENTRICULAR HYPERTROPHY [None]
